FAERS Safety Report 8045815-6 (Version None)
Quarter: 2012Q1

REPORT INFORMATION
  Report Type: 
  Country: None (occurrence: None)
  Receive Date: 20120113
  Receipt Date: 20120111
  Transmission Date: 20120608
  Serious: Yes (Death, Hospitalization, Other)
  Sender: FDA-Public Use
  Company Number: AU-PFIZER INC-2011284835

PATIENT
  Age: 68 Year
  Sex: Male
  Weight: 58 kg

DRUGS (5)
  1. SUTENT [Suspect]
     Indication: METASTATIC RENAL CELL CARCINOMA
     Dosage: 50 MG, UNK
     Route: 048
     Dates: start: 20080601, end: 20081201
  2. CENTRUM [Concomitant]
     Dosage: ONE DAILY
     Route: 048
  3. SUTENT [Suspect]
     Dosage: 25 MG, UNK
     Route: 048
     Dates: start: 20081201, end: 20100401
  4. PANTOPRAZOLE [Concomitant]
     Indication: PEPTIC ULCER
     Dosage: 40 MG, 1X/DAY
     Route: 048
  5. COVERSYL PLUS [Concomitant]
     Indication: HYPERTENSION
     Dosage: 5/1.25 DAILY
     Route: 048

REACTIONS (2)
  - SQUAMOUS CELL CARCINOMA [None]
  - NEOPLASM MALIGNANT [None]
